FAERS Safety Report 6728542-4 (Version None)
Quarter: 2010Q2

REPORT INFORMATION
  Report Type: 
  Country: None (occurrence: None)
  Receive Date: 20100517
  Receipt Date: 20100506
  Transmission Date: 20101027
  Serious: Yes (Other)
  Sender: FDA-Public Use
  Company Number: JP-PFIZER INC-2010058953

PATIENT
  Age: 58 Year
  Sex: Male

DRUGS (18)
  1. ZYVOX [Suspect]
     Dosage: 120 MG DAILY
     Route: 048
     Dates: start: 20100427, end: 20100501
  2. LASIX [Concomitant]
     Dosage: UNK
     Route: 048
  3. FLUITRAN [Concomitant]
     Dosage: UNK
     Route: 048
  4. CALCIUM CARBONATE [Concomitant]
     Dosage: UNK
     Route: 048
  5. CRESTOR [Concomitant]
     Dosage: UNK
     Route: 048
  6. OLMESARTAN MEDOXOMIL [Concomitant]
     Dosage: UNK
     Route: 048
  7. DILTIAZEM HYDROCHLORIDE [Concomitant]
     Dosage: UNK
     Route: 048
  8. GLUCOBAY [Concomitant]
     Dosage: UNK
     Route: 048
  9. TALION [Concomitant]
     Dosage: UNK
     Route: 048
  10. WARFARIN [Concomitant]
     Dosage: UNK
     Route: 048
  11. PLETAL [Concomitant]
     Dosage: UNK
     Route: 048
  12. LOPEMIN [Concomitant]
     Dosage: UNK
     Route: 048
  13. ALL OTHER THERAPEUTIC PRODUCTS [Concomitant]
     Dosage: UNK
     Route: 048
  14. TANNALBIN [Concomitant]
     Dosage: UNK
     Route: 048
  15. SCOPOLIA EXTRACT [Concomitant]
     Dosage: UNK
     Route: 048
  16. BIOFERMIN [Concomitant]
     Dosage: UNK
     Route: 048
  17. NOVORAPID [Concomitant]
     Dosage: UNK
     Route: 058
  18. NOVOLIN [Concomitant]
     Dosage: UNK
     Route: 058

REACTIONS (3)
  - DRUG ERUPTION [None]
  - GENERALISED OEDEMA [None]
  - PRURITUS GENERALISED [None]
